FAERS Safety Report 22649669 (Version 1)
Quarter: 2023Q2

REPORT INFORMATION
  Report Type: Spontaneous
  Country: PL (occurrence: PL)
  Receive Date: 20230628
  Receipt Date: 20230628
  Transmission Date: 20230722
  Serious: Yes (Other)
  Sender: FDA-Public Use
  Company Number: PL-SA-2023SA192219

PATIENT

DRUGS (3)
  1. CLOPIDOGREL BISULFATE [Suspect]
     Active Substance: CLOPIDOGREL BISULFATE
     Indication: Antiplatelet therapy
     Dosage: 75 MG
  2. ASPIRIN [Concomitant]
     Active Substance: ASPIRIN
     Indication: Antiplatelet therapy
     Dosage: 300 MG
  3. ASPIRIN [Concomitant]
     Active Substance: ASPIRIN
     Dosage: 150 MG

REACTIONS (2)
  - Vascular stent thrombosis [Recovered/Resolved]
  - Drug resistance [Recovered/Resolved]
